FAERS Safety Report 6510823-0 (Version None)
Quarter: 2009Q4

REPORT INFORMATION
  Report Type: 
  Country: None (occurrence: None)
  Receive Date: 20091222
  Receipt Date: 20090212
  Transmission Date: 20100525
  Serious: No
  Sender: FDA-Public Use
  Company Number: US-ASTRAZENECA-2009UW00832

PATIENT
  Age: 57 Year
  Sex: Female
  Weight: 69.9 kg

DRUGS (5)
  1. CRESTOR [Suspect]
     Indication: HYPERCHOLESTEROLAEMIA
     Dosage: 20 MG
     Route: 048
  2. HYDROCHLOROTHIAZIDE [Concomitant]
  3. CALCIUM [Concomitant]
  4. MULTI-VITAMIN [Concomitant]
  5. ASPIRIN [Concomitant]

REACTIONS (1)
  - PRODUCT TASTE ABNORMAL [None]
